FAERS Safety Report 18808770 (Version 1)
Quarter: 2021Q1

REPORT INFORMATION
  Report Type: Spontaneous
  Country: US (occurrence: US)
  Receive Date: 20210129
  Receipt Date: 20210129
  Transmission Date: 20210419
  Serious: Yes (Other)
  Sender: FDA-Public Use
  Company Number: US-GLAXOSMITHKLINE-US2021GSK022131

PATIENT
  Sex: Male

DRUGS (3)
  1. RANITIDINE. [Suspect]
     Active Substance: RANITIDINE
     Indication: TRANSPLANT
     Dosage: 150 MG, WE
     Dates: start: 201503, end: 201703
  2. RANITIDINE. [Suspect]
     Active Substance: RANITIDINE
     Indication: TRANSPLANT
     Dosage: 150 MG, WE
     Dates: start: 201503, end: 201703
  3. ZANTAC [Suspect]
     Active Substance: RANITIDINE HYDROCHLORIDE
     Indication: TRANSPLANT
     Dosage: UNK UNK, QD

REACTIONS (1)
  - Lung neoplasm malignant [Unknown]
